FAERS Safety Report 7822263-2 (Version None)
Quarter: 2011Q4

REPORT INFORMATION
  Report Type: 
  Country: None (occurrence: None)
  Receive Date: 20111018
  Receipt Date: 20110513
  Transmission Date: 20120403
  Serious: No
  Sender: FDA-Public Use
  Company Number: US-ASTRAZENECA-2011SE29415

PATIENT
  Age: 6 Year
  Sex: Female

DRUGS (2)
  1. PREVACID [Concomitant]
  2. SYMBICORT [Suspect]
     Indication: ASTHMA
     Dosage: 160,TWO TIMES IN A DAY
     Route: 055
     Dates: start: 20110301

REACTIONS (1)
  - WEIGHT INCREASED [None]
